FAERS Safety Report 10332716 (Version 1)
Quarter: 2014Q3

REPORT INFORMATION
  Report Type: Spontaneous
  Country: US (occurrence: US)
  Receive Date: 20140722
  Receipt Date: 20140722
  Transmission Date: 20150326
  Serious: Yes (Other)
  Sender: FDA-Public Use
  Company Number: PHHY2014US089371

PATIENT
  Sex: Female
  Weight: 60.77 kg

DRUGS (12)
  1. DOCUSATE SODIUM. [Concomitant]
     Active Substance: DOCUSATE SODIUM
  2. AMPYRA [Concomitant]
     Active Substance: DALFAMPRIDINE
     Indication: GAIT DISTURBANCE
  3. TEMAZEPAM. [Concomitant]
     Active Substance: TEMAZEPAM
  4. CALCIUM [Concomitant]
     Active Substance: CALCIUM
  5. PROPRANOLOL [Concomitant]
     Active Substance: PROPRANOLOL\PROPRANOLOL HYDROCHLORIDE
  6. LITHIUM [Concomitant]
     Active Substance: LITHIUM CARBONATE
  7. VITAMIN D [Concomitant]
     Active Substance: CHOLECALCIFEROL
  8. SYNTHROID [Concomitant]
     Active Substance: LEVOTHYROXINE SODIUM
  9. GILENYA [Suspect]
     Active Substance: FINGOLIMOD HYDROCHLORIDE
     Indication: MULTIPLE SCLEROSIS
     Dosage: 0.5 MG, QD
     Route: 048
     Dates: start: 20110907
  10. FOSAMAX [Concomitant]
     Active Substance: ALENDRONATE SODIUM
  11. DEPAKOTE [Concomitant]
     Active Substance: DIVALPROEX SODIUM
  12. FAMPRIDINE [Suspect]
     Active Substance: DALFAMPRIDINE
     Indication: GAIT DISTURBANCE
     Dosage: 10 MG, BID
     Route: 048
     Dates: start: 20110809, end: 20120112

REACTIONS (1)
  - Myocardial infarction [Unknown]
